FAERS Safety Report 7962665-7 (Version None)
Quarter: 2011Q4

REPORT INFORMATION
  Report Type: 
  Country: None (occurrence: None)
  Receive Date: 20111207
  Receipt Date: 20111129
  Transmission Date: 20120403
  Serious: Yes (Hospitalization)
  Sender: FDA-Public Use
  Company Number: CO-MEDIMMUNE-MEDI-0014033

PATIENT
  Sex: Female
  Weight: 2.1 kg

DRUGS (4)
  1. METOCLOPRAMIDE [Concomitant]
     Route: 042
  2. VITAMIN TAB [Concomitant]
     Dosage: 5 DROPS/KG
     Route: 048
  3. SYNAGIS [Suspect]
     Route: 030
     Dates: start: 20111122, end: 20111122
  4. IRON [Concomitant]
     Route: 048

REACTIONS (3)
  - TACHYPNOEA [None]
  - TACHYCARDIA [None]
  - CYANOSIS [None]
